FAERS Safety Report 8484937-2 (Version None)
Quarter: 2012Q3

REPORT INFORMATION
  Report Type: 
  Country: None (occurrence: None)
  Receive Date: 20120703
  Receipt Date: 20120626
  Transmission Date: 20120928
  Serious: Yes (Other)
  Sender: FDA-Public Use
  Company Number: FR-ASTELLAS-2012EU004655

PATIENT
  Sex: Female

DRUGS (1)
  1. PROTOPIC [Suspect]
     Indication: VITILIGO
     Dosage: 1 DF, BID
     Route: 061
     Dates: start: 20081201, end: 20090101

REACTIONS (2)
  - OFF LABEL USE [None]
  - NEOPLASM [None]
